FAERS Safety Report 4524182-6 (Version None)
Quarter: 2004Q4

REPORT INFORMATION
  Report Type: 
  Country: None (occurrence: None)
  Receive Date: 20041209
  Receipt Date: 20041130
  Transmission Date: 20050328
  Serious: Yes (Life-Threatening, Hospitalization)
  Sender: FDA-Public Use
  Company Number: J081-002-001818

PATIENT
  Age: 69 Year
  Sex: Male
  Weight: 58.6 kg

DRUGS (3)
  1. ARICEPT [Suspect]
     Indication: DEMENTIA
     Dosage: 5 MG, 1 IN 1 D, ORAL
     Route: 048
     Dates: start: 20040401, end: 20041022
  2. RENIVEZE (ENALPARIL MALEATE) [Concomitant]
  3. GRAMALIL (TIAPRIDE HYDROCHLORIDE) [Concomitant]

REACTIONS (3)
  - CARDIAC ARREST [None]
  - SICK SINUS SYNDROME [None]
  - SYNCOPE [None]
